FAERS Safety Report 4801942-5 (Version None)
Quarter: 2005Q4

REPORT INFORMATION
  Report Type: 
  Country: None (occurrence: None)
  Receive Date: 20051012
  Receipt Date: 20050926
  Transmission Date: 20060501
  Serious: Yes (Hospitalization)
  Sender: FDA-Public Use
  Company Number: 214513

PATIENT
  Age: 40 Year
  Sex: Female
  Weight: 65 kg

DRUGS (9)
  1. AVASTIN [Suspect]
     Indication: OVARIAN CANCER
     Dosage: SEE IMAGE, INTRAVENOUS
     Route: 042
     Dates: start: 20050222, end: 20050321
  2. AVASTIN [Suspect]
     Indication: OVARIAN CANCER
     Dosage: SEE IMAGE, INTRAVENOUS
     Route: 042
     Dates: start: 20050404
  3. BAY 43-9006 (SORAFENIB) [Suspect]
     Indication: OVARIAN CANCER
     Dosage: 200 MG, BID, ORAL
     Route: 048
     Dates: start: 20050222, end: 20050321
  4. VITAMIN B6 [Concomitant]
  5. CHOLESTYRAMINE [Concomitant]
  6. MVI (MULTIVITAMINS NOS) [Concomitant]
  7. MOTOFEN (ATROPINE SULFATE, DIFENOXIN) [Concomitant]
  8. TYLENOL (ACETAMINOPHEN) [Concomitant]
  9. OXYCODONE HCL [Concomitant]

REACTIONS (5)
  - FISTULA [None]
  - GASTROINTESTINAL ULCER [None]
  - HAEMATOCRIT DECREASED [None]
  - HAEMOGLOBIN DECREASED [None]
  - POUCHITIS [None]
